FAERS Safety Report 12190874 (Version 1)
Quarter: 2016Q1

REPORT INFORMATION
  Report Type: Spontaneous
  Country: US (occurrence: None)
  Receive Date: 20160317
  Receipt Date: 20160317
  Transmission Date: 20160526
  Serious: No
  Sender: FDA-Public Use
  Company Number: None

PATIENT
  Age: 55 Year
  Sex: Female

DRUGS (2)
  1. ATRIPLA [Suspect]
     Active Substance: EFAVIRENZ\EMTRICITABINE\TENOFOVIR DISOPROXIL FUMARATE
     Indication: HIV INFECTION
     Dosage: 1 TABLET DAILY BY MOUTH
     Route: 048
     Dates: start: 20160223
  2. ABACAVIR 300MG APOTEX CORP [Suspect]
     Active Substance: ABACAVIR
     Indication: HIV INFECTION
     Dosage: 2 TABLETS DAILY BY MOUTH
     Route: 048
     Dates: start: 20160223

REACTIONS (2)
  - Erythema [None]
  - Skin disorder [None]
